FAERS Safety Report 4990886-4 (Version None)
Quarter: 2006Q2

REPORT INFORMATION
  Report Type: 
  Country: None (occurrence: None)
  Receive Date: 20060428
  Receipt Date: 20060417
  Transmission Date: 20061013
  Serious: Yes (Other)
  Sender: FDA-Public Use
  Company Number: CHPA2006US03941

PATIENT
  Age: 28 Year
  Sex: Female
  Weight: 79.8 kg

DRUGS (2)
  1. NICOTINE [Suspect]
     Indication: SMOKING CESSATION THERAPY
     Dosage: 21 MG QD TRANSDERMAL
     Route: 062
     Dates: start: 20060417, end: 20060417
  2. EXCEDRIN (MIGRAINE) [Concomitant]

REACTIONS (4)
  - CONVULSION [None]
  - EYE DISORDER [None]
  - FEELING ABNORMAL [None]
  - TREMOR [None]
